FAERS Safety Report 5465615-0 (Version None)
Quarter: 2007Q3

REPORT INFORMATION
  Report Type: 
  Country: None (occurrence: None)
  Receive Date: 20070924
  Receipt Date: 20070913
  Transmission Date: 20080115
  Serious: Yes (Hospitalization, Other)
  Sender: FDA-Public Use
  Company Number: GB-AVENTIS-200717489GDDC

PATIENT
  Age: 82 Year
  Sex: Female

DRUGS (6)
  1. LEVOFLOXACIN [Suspect]
  2. LEVOFLOXACIN [Suspect]
     Indication: PSEUDOMONAS INFECTION
  3. RIFAMPICIN [Suspect]
  4. RIFAMPICIN [Suspect]
     Indication: PSEUDOMONAS INFECTION
  5. PARACETAMOL [Suspect]
  6. FLUCLOXACILLIN [Suspect]
     Route: 042

REACTIONS (6)
  - CONFUSIONAL STATE [None]
  - COORDINATION ABNORMAL [None]
  - DEPRESSED LEVEL OF CONSCIOUSNESS [None]
  - METABOLIC ACIDOSIS [None]
  - METABOLIC ENCEPHALOPATHY [None]
  - NAUSEA [None]
